FAERS Safety Report 9442068 (Version 2)
Quarter: 2013Q3

REPORT INFORMATION
  Report Type: Spontaneous
  Country: US (occurrence: US)
  Receive Date: 20130806
  Receipt Date: 20130809
  Transmission Date: 20140515
  Serious: Yes (Other)
  Sender: FDA-Public Use
  Company Number: US-RB-056928-13

PATIENT
  Age: 58 Year
  Sex: Female
  Weight: 108 kg

DRUGS (7)
  1. MUCINEX D [Suspect]
     Indication: RESPIRATORY TRACT INFECTION
     Route: 048
     Dates: end: 20130721
  2. MUCINEX D [Suspect]
     Indication: SINUSITIS
     Route: 048
     Dates: end: 20130721
  3. MUCINEX D [Suspect]
     Indication: RESPIRATORY TRACT CONGESTION
     Route: 048
     Dates: end: 20130721
  4. METFORMIN [Concomitant]
     Indication: PRODUCT USED FOR UNKNOWN INDICATION
  5. ADVAIR [Concomitant]
     Indication: PRODUCT USED FOR UNKNOWN INDICATION
  6. LANTUS [Concomitant]
     Indication: PRODUCT USED FOR UNKNOWN INDICATION
  7. COZAAR [Concomitant]
     Indication: PRODUCT USED FOR UNKNOWN INDICATION

REACTIONS (2)
  - Restless legs syndrome [Recovered/Resolved]
  - Muscle spasms [Recovered/Resolved]
